FAERS Safety Report 6220122-2 (Version None)
Quarter: 2009Q2

REPORT INFORMATION
  Report Type: 
  Country: None (occurrence: None)
  Receive Date: 20090609
  Receipt Date: 20090527
  Transmission Date: 20091009
  Serious: Yes (Hospitalization)
  Sender: FDA-Public Use
  Company Number: US-ELI_LILLY_AND_COMPANY-US200905005819

PATIENT
  Sex: Male

DRUGS (9)
  1. HUMALOG MIX 75/25 [Suspect]
     Indication: DIABETES MELLITUS
     Dates: start: 20010101, end: 20060101
  2. HUMULIN 70/30 [Suspect]
     Indication: DIABETES MELLITUS
     Dosage: 15 U, UNK
     Dates: start: 20060101
  3. HUMULIN 70/30 [Suspect]
     Dosage: 28 U, EACH MORNING
  4. HUMULIN 70/30 [Suspect]
     Dosage: 26 U, EACH EVENING
  5. ASPIRIN [Concomitant]
     Indication: CARDIAC DISORDER
     Dates: start: 19950101
  6. PRECOSE [Concomitant]
     Indication: DIABETES MELLITUS
  7. GLIMEPIRIDE [Concomitant]
     Indication: DIABETES MELLITUS
  8. VANCOMYCIN HCL [Concomitant]
     Indication: LOCALISED INFECTION
  9. ANTIBIOTICS [Concomitant]
     Indication: LOCALISED INFECTION

REACTIONS (10)
  - BLOOD GLUCOSE DECREASED [None]
  - BLOOD GLUCOSE INCREASED [None]
  - DYSPNOEA [None]
  - EYE SWELLING [None]
  - HYPERHIDROSIS [None]
  - HYPERKERATOSIS [None]
  - ILL-DEFINED DISORDER [None]
  - LOCALISED INFECTION [None]
  - RASH PRURITIC [None]
  - RASH PUSTULAR [None]
